FAERS Safety Report 7034428-0 (Version None)
Quarter: 2010Q4

REPORT INFORMATION
  Report Type: 
  Country: None (occurrence: None)
  Receive Date: 20101008
  Receipt Date: 20100928
  Transmission Date: 20110411
  Serious: Yes (Other)
  Sender: FDA-Public Use
  Company Number: PHFR2010GB01087

PATIENT
  Sex: Male

DRUGS (9)
  1. CLOZARIL [Suspect]
     Indication: SCHIZOPHRENIA
     Dosage: 300 MG DAILY
     Route: 048
     Dates: start: 20030815
  2. CLOZARIL [Suspect]
     Dosage: 400 MG DAILY
     Route: 048
     Dates: start: 20100713
  3. IBUPROFEN [Concomitant]
     Dosage: 400 MG, BID
  4. ZOPICLONE [Concomitant]
     Dosage: 7.5 MG, UNK
  5. SENNA [Concomitant]
     Dosage: 2 DF, TID
  6. QUININE SULFATE [Concomitant]
     Dosage: 300 MG, QD
  7. SALBUTAMOL [Concomitant]
     Dosage: 100 UG, UNK
  8. PROCYCLIDINE HYDROCHLORIDE 2MG TAB [Concomitant]
     Dosage: 10 MG, UNK
  9. ACETAMINOPHEN AND CODEINE PHOSPHATE [Concomitant]
     Dosage: 1 DF, PRN

REACTIONS (1)
  - ELECTROCARDIOGRAM QT PROLONGED [None]
